FAERS Safety Report 8530847-1 (Version None)
Quarter: 2012Q2

REPORT INFORMATION
  Report Type: 
  Country: None (occurrence: None)
  Receive Date: 20120412
  Receipt Date: 20111229
  Transmission Date: 20120825
  Serious: No
  Sender: FDA-Public Use
  Company Number: 2012S1000001

PATIENT
  Age: 49 Year
  Sex: Male
  Weight: 99.7913 kg

DRUGS (4)
  1. METOPROLOL SUCCINATE [Concomitant]
  2. COLCHICINE [Concomitant]
  3. KRYSTEXXA [Suspect]
     Indication: GOUT
     Dosage: 8 MG;Q14DAYS;IV
     Route: 042
     Dates: start: 20110901
  4. CRESTOR [Concomitant]

REACTIONS (1)
  - GOUT [None]
